FAERS Safety Report 7639063-9 (Version None)
Quarter: 2011Q3

REPORT INFORMATION
  Report Type: 
  Country: None (occurrence: None)
  Receive Date: 20110726
  Receipt Date: 20110726
  Transmission Date: 20111222
  Serious: Yes (Hospitalization)
  Sender: FDA-Public Use
  Company Number: None

PATIENT
  Age: 61 Year
  Sex: Female
  Weight: 57.1532 kg

DRUGS (2)
  1. VORINOSTAT 300 MG PO [Suspect]
     Indication: MULTIPLE MYELOMA
     Dosage: 300 MG PO
     Route: 048
     Dates: start: 20110707
  2. VORINOSTAT 300 MG PO [Suspect]
     Indication: MULTIPLE MYELOMA
     Dosage: 300 MG PO
     Route: 048
     Dates: start: 20110708

REACTIONS (1)
  - PNEUMONIA [None]
